FAERS Safety Report 9842797 (Version 2)
Quarter: 2014Q1

REPORT INFORMATION
  Report Type: Report from Study
  Country: GR (occurrence: GR)
  Receive Date: 20140124
  Receipt Date: 20140124
  Transmission Date: 20141002
  Serious: Yes (Hospitalization)
  Sender: FDA-Public Use
  Company Number: GR-ABBVIE-13P-066-1155596-00

PATIENT
  Age: 14 Year
  Sex: Female

DRUGS (4)
  1. HUMIRA [Suspect]
     Indication: JUVENILE IDIOPATHIC ARTHRITIS
     Route: 058
     Dates: start: 20121027, end: 20130913
  2. HUMIRA [Suspect]
  3. UNKNOWN ANTIBIOTIC [Suspect]
     Indication: VIRAL INFECTION
     Route: 048
     Dates: start: 201309
  4. UNKNOWN ANTIFEBRILE [Suspect]
     Indication: VIRAL INFECTION
     Route: 048
     Dates: start: 201309

REACTIONS (3)
  - Gastritis [Recovering/Resolving]
  - Gastrooesophageal reflux disease [Recovering/Resolving]
  - Viral infection [Recovered/Resolved]
